FAERS Safety Report 6456172-0 (Version None)
Quarter: 2009Q4

REPORT INFORMATION
  Report Type: 
  Country: None (occurrence: None)
  Receive Date: 20091125
  Receipt Date: 20091116
  Transmission Date: 20100525
  Serious: Yes (Other)
  Sender: FDA-Public Use
  Company Number: US-PFIZER INC-2009299122

PATIENT
  Sex: Male
  Weight: 133.79 kg

DRUGS (11)
  1. ACCUPRIL [Suspect]
     Indication: HYPERTENSION
     Dosage: 20 MG, 1X/DAY
     Dates: start: 20090101, end: 20090101
  2. NORVASC [Suspect]
     Indication: HYPERTENSION
     Dates: start: 20090101, end: 20090101
  3. GABAPENTIN [Concomitant]
     Dosage: FREQUENCY: 2X/DAY,
  4. ZOLOFT [Concomitant]
     Dosage: 100 MG, DAILY
  5. PROTONIX [Concomitant]
  6. TYLENOL (CAPLET) [Concomitant]
     Dosage: FREQUENCY: AS NEEDED,
  7. SALICYLIC ACID [Concomitant]
  8. RISPERDAL [Concomitant]
  9. BENAZEPRIL HYDROCHLORIDE [Concomitant]
  10. HYDROCHLOROTHIAZIDE [Concomitant]
  11. FISH OIL [Concomitant]

REACTIONS (6)
  - BLOOD CHOLESTEROL INCREASED [None]
  - BLOOD GLUCOSE DECREASED [None]
  - CONSTIPATION [None]
  - DIABETES MELLITUS [None]
  - HYPERSENSITIVITY [None]
  - HYPOTENSION [None]
